FAERS Safety Report 22376307 (Version 2)
Quarter: 2023Q2

REPORT INFORMATION
  Report Type: Spontaneous
  Country: US (occurrence: US)
  Receive Date: 20230527
  Receipt Date: 20230527
  Transmission Date: 20230721
  Serious: No
  Sender: FDA-Public Use
  Company Number: US-Dermavant-000508

PATIENT
  Age: 29 Year
  Sex: Female

DRUGS (3)
  1. TAPINAROF [Suspect]
     Active Substance: TAPINAROF
     Indication: Psoriasis
     Dosage: AREA OF APPLICATION: ARM PITS, ^UNDERNEATH STOMACH^
     Route: 061
     Dates: start: 202302, end: 20230228
  2. SKYRIZI [Suspect]
     Active Substance: RISANKIZUMAB-RZAA
  3. SULFACETAMIDE SODIUM AND SULFUR [Suspect]
     Active Substance: SULFACETAMIDE SODIUM\SULFUR
     Dates: start: 202302

REACTIONS (1)
  - Headache [Unknown]

NARRATIVE: CASE EVENT DATE: 20230201
